FAERS Safety Report 23697551 (Version 1)
Quarter: 2024Q2

REPORT INFORMATION
  Report Type: Spontaneous
  Country: US (occurrence: US)
  Receive Date: 20240402
  Receipt Date: 20240402
  Transmission Date: 20240717
  Serious: No
  Sender: FDA-Public Use
  Company Number: US-TARO PHARMACEUTICALS USA INC.-2024TAR00385

PATIENT

DRUGS (1)
  1. MINOXIDIL [Suspect]
     Active Substance: MINOXIDIL
     Indication: Rash macular
     Dosage: 10 MG, OD, ON THIN SPOTS COUPLE OF THEM
     Route: 061
     Dates: start: 202402

REACTIONS (1)
  - Counterfeit product administered [Unknown]

NARRATIVE: CASE EVENT DATE: 20240201
